FAERS Safety Report 8595828-0 (Version None)
Quarter: 2012Q3

REPORT INFORMATION
  Report Type: 
  Country: None (occurrence: None)
  Receive Date: 20120807
  Receipt Date: 20120807
  Transmission Date: 20120928
  Serious: Yes (Hospitalization)
  Sender: FDA-Public Use
  Company Number: None

PATIENT
  Age: 32 Year
  Sex: Female
  Weight: 86.1834 kg

DRUGS (2)
  1. SEPTRA DS [Suspect]
     Indication: STAPHYLOCOCCAL INFECTION
     Dosage: 1 TAB PO BID
     Route: 048
     Dates: start: 20120108
  2. SEPTRA DS [Suspect]
     Indication: STAPHYLOCOCCAL INFECTION
     Dosage: 1 TAB PO BID
     Route: 048
     Dates: start: 20111201

REACTIONS (9)
  - HYPOTENSION [None]
  - CHEST DISCOMFORT [None]
  - HEART RATE INCREASED [None]
  - NAUSEA [None]
  - VOMITING [None]
  - DYSPNOEA [None]
  - RASH ERYTHEMATOUS [None]
  - ANGIOEDEMA [None]
  - HEADACHE [None]
